FAERS Safety Report 25957216 (Version 1)
Quarter: 2025Q4

REPORT INFORMATION
  Report Type: Spontaneous
  Country: EU (occurrence: EU)
  Receive Date: 20251024
  Receipt Date: 20251024
  Transmission Date: 20260118
  Serious: Yes (Other)
  Sender: PFIZER
  Company Number: EU-PFIZER INC-PV202500124979

PATIENT

DRUGS (3)
  1. LORLATINIB [Suspect]
     Active Substance: LORLATINIB
     Indication: Lung neoplasm malignant
     Dosage: UNK
  2. LORLATINIB [Suspect]
     Active Substance: LORLATINIB
     Dosage: 75 MG
  3. LORLATINIB [Suspect]
     Active Substance: LORLATINIB
     Dosage: 50 MG

REACTIONS (3)
  - Pericarditis [Unknown]
  - Polyneuropathy [Unknown]
  - Pleurisy [Unknown]
